FAERS Safety Report 8817235 (Version 1)
Quarter: 2012Q4

REPORT INFORMATION
  Report Type: 
  Country: US (occurrence: US)
  Receive Date: 20121001
  Receipt Date: 20121001
  Transmission Date: 20130627
  Serious: No
  Sender: FDA-Public Use
  Company Number: US-AMGEN-USASP2012049770

PATIENT
  Age: 85 Year
  Sex: Female
  Weight: 52.15 kg

DRUGS (1)
  1. PROLIA [Suspect]
     Indication: OSTEOPOROSIS POSTMENOPAUSAL
     Dosage: 60 mg, qmo
     Route: 058
     Dates: start: 20110714, end: 20120119

REACTIONS (1)
  - Bone pain [Unknown]
